FAERS Safety Report 10623657 (Version 1)
Quarter: 2014Q4

REPORT INFORMATION
  Report Type: Spontaneous
  Country: PL (occurrence: PL)
  Receive Date: 20141203
  Receipt Date: 20141203
  Transmission Date: 20150529
  Serious: Yes (Hospitalization, Other)
  Sender: FDA-Public Use
  Company Number: PL-BAYER-2014-176661

PATIENT
  Age: 73 Year
  Sex: Male

DRUGS (6)
  1. FUROSEMIDE. [Suspect]
     Active Substance: FUROSEMIDE
  2. GEMCITABINE [Concomitant]
     Active Substance: GEMCITABINE\GEMCITABINE HYDROCHLORIDE
     Indication: METASTATIC RENAL CELL CARCINOMA
     Dosage: 6 COURSES (NOS)
     Dates: start: 200608, end: 200610
  3. NAVALBINE [Concomitant]
     Indication: METASTATIC RENAL CELL CARCINOMA
     Dosage: 6 COURSES (NOS)
     Route: 042
     Dates: start: 200608, end: 200610
  4. NEXAVAR [Suspect]
     Active Substance: SORAFENIB
     Indication: METASTATIC RENAL CELL CARCINOMA
     Dosage: 400 MG, BID
     Route: 048
     Dates: start: 200605, end: 200701
  5. ROFERON-A [Concomitant]
     Active Substance: INTERFERON ALFA-2A
     Indication: METASTATIC RENAL CELL CARCINOMA
     Dosage: 4 COURSES (NOS)
     Route: 058
     Dates: start: 200610, end: 200701
  6. INTERLEUKIN-2 [Concomitant]
     Active Substance: ALDESLEUKIN
     Indication: METASTATIC RENAL CELL CARCINOMA
     Dosage: 6 COURSES (NOS)
     Route: 042
     Dates: start: 200608, end: 200610

REACTIONS (6)
  - Retinal vein thrombosis [Not Recovered/Not Resolved]
  - Metastases to skin [None]
  - General physical health deterioration [None]
  - Retinal vein thrombosis [Not Recovered/Not Resolved]
  - Macular oedema [Not Recovered/Not Resolved]
  - Visual acuity reduced [Not Recovered/Not Resolved]

NARRATIVE: CASE EVENT DATE: 200704
